FAERS Safety Report 9863651 (Version 1)
Quarter: 2014Q1

REPORT INFORMATION
  Report Type: Spontaneous
  Country: FR (occurrence: FR)
  Receive Date: 20140203
  Receipt Date: 20140203
  Transmission Date: 20141002
  Serious: Yes (Hospitalization)
  Sender: FDA-Public Use
  Company Number: FR-ABBVIE-14P-056-1196202-00

PATIENT
  Age: 63 Year
  Sex: Female

DRUGS (3)
  1. DEPAKINE [Suspect]
     Indication: BIPOLAR DISORDER
     Dosage: EXTENDED RELEASE
     Route: 048
     Dates: start: 201208, end: 20130625
  2. THERALENE [Concomitant]
     Indication: PRODUCT USED FOR UNKNOWN INDICATION
  3. DEPAKOTE [Concomitant]
     Indication: PRODUCT USED FOR UNKNOWN INDICATION

REACTIONS (3)
  - Extrapyramidal disorder [Recovering/Resolving]
  - Gait disturbance [Recovering/Resolving]
  - Tremor [Recovering/Resolving]
